FAERS Safety Report 8916139 (Version 1)
Quarter: 2012Q4

REPORT INFORMATION
  Report Type: 
  Country: US (occurrence: US)
  Receive Date: 20121120
  Receipt Date: 20121120
  Transmission Date: 20130627
  Serious: Yes (Hospitalization)
  Sender: FDA-Public Use
  Company Number: US-GLAXOSMITHKLINE-A0640801A

PATIENT
  Age: 22 Year
  Sex: Male
  Weight: 70.8 kg

DRUGS (11)
  1. FLOLAN [Suspect]
     Indication: PULMONARY ARTERIAL HYPERTENSION
     Dosage: 60NGKM Unknown
     Route: 042
     Dates: start: 20001114
  2. LASIX [Concomitant]
     Dosage: 20MG Per day
     Route: 048
  3. ASCORBIC ACID [Concomitant]
     Dosage: 1000MG Per day
     Route: 048
  4. ZINC GLUCONATE [Concomitant]
     Dosage: 60MG Per day
     Route: 048
  5. TYLENOL [Concomitant]
     Dosage: 500MG As required
     Route: 048
  6. B-COMPLEX [Concomitant]
     Dosage: 1CAP Per day
     Route: 048
  7. IMODIUM AD [Concomitant]
     Dosage: 1MG As required
     Route: 048
  8. COUMADIN [Concomitant]
     Dosage: 2MG Per day
     Route: 048
  9. LUVOX [Concomitant]
     Dosage: 100MG Per day
     Route: 048
  10. NEOSPORIN [Concomitant]
     Route: 061
  11. BACITRACIN + NEOMYCIN + POLYMIXIN [Concomitant]
     Route: 061

REACTIONS (3)
  - Lung infection [Unknown]
  - Device occlusion [Unknown]
  - Product quality issue [Unknown]
